FAERS Safety Report 17907481 (Version 1)
Quarter: 2020Q2

REPORT INFORMATION
  Report Type: Spontaneous
  Country: US (occurrence: US)
  Receive Date: 20200617
  Receipt Date: 20200617
  Transmission Date: 20200714
  Serious: No
  Sender: FDA-Public Use
  Company Number: US-VERTEX PHARMACEUTICALS-2020-012755

PATIENT
  Sex: Female
  Weight: 50 kg

DRUGS (2)
  1. TRIKAFTA [Suspect]
     Active Substance: ELEXACAFTOR\IVACAFTOR\TEZACAFTOR
     Indication: CYSTIC FIBROSIS
     Dosage: 2 TABS 100 MG ELEXACAFTOR/ 50 MG TEZACAFTOR/ 75 MG IVACAFTOR, AM AND 1 TAB 150MG IVACAFTOR, PM
     Route: 048
  2. PULMOZYME [Concomitant]
     Active Substance: DORNASE ALFA

REACTIONS (4)
  - Sluggishness [Unknown]
  - Fatigue [Unknown]
  - Asthenia [Unknown]
  - Dyspnoea exertional [Unknown]
